FAERS Safety Report 15023811 (Version 2)
Quarter: 2018Q3

REPORT INFORMATION
  Report Type: Spontaneous
  Country: US (occurrence: US)
  Receive Date: 20180618
  Receipt Date: 20180706
  Transmission Date: 20181010
  Serious: Yes (Death, Other)
  Sender: FDA-Public Use
  Company Number: US-BAYER-2018-112458

PATIENT
  Age: 10 Year
  Sex: Male

DRUGS (1)
  1. ANTIHEMOPHILIC FACTOR (HUMAN) NOS [Suspect]
     Active Substance: ANTIHEMOPHILIC FACTOR HUMAN
     Indication: COAGULOPATHY

REACTIONS (3)
  - Suspected transmission of an infectious agent via product [None]
  - HIV infection [None]
  - Acquired immunodeficiency syndrome [Fatal]
